FAERS Safety Report 9908935 (Version 2)
Quarter: 2014Q1

REPORT INFORMATION
  Report Type: Spontaneous
  Country: US (occurrence: US)
  Receive Date: 20140219
  Receipt Date: 20140219
  Transmission Date: 20141002
  Serious: Yes (Other)
  Sender: FDA-Public Use
  Company Number: US-UCBSA-087869

PATIENT
  Age: 18 Year
  Sex: Female

DRUGS (3)
  1. CIMZIA [Suspect]
     Indication: CROHN^S DISEASE
     Dosage: 200 MG EVERY 2 WEEKS. LOT NUMBER 111083. EXP DATE: APR-2016
     Route: 058
     Dates: start: 20130802
  2. CIMZIA [Suspect]
     Indication: CROHN^S DISEASE
     Dosage: 400 MG EVERY 4 WEEKS
     Route: 058
     Dates: start: 2013, end: 2013
  3. CIMZIA [Suspect]
     Indication: CROHN^S DISEASE
     Dosage: 0-2-4 WEEKS
     Route: 058
     Dates: start: 20130117, end: 2013

REACTIONS (5)
  - Bartholin^s cyst [Not Recovered/Not Resolved]
  - Haematochezia [Not Recovered/Not Resolved]
  - Diarrhoea [Not Recovered/Not Resolved]
  - Weight decreased [Not Recovered/Not Resolved]
  - Infection [Not Recovered/Not Resolved]
